FAERS Safety Report 17882854 (Version 1)
Quarter: 2020Q2

REPORT INFORMATION
  Report Type: Report from Study
  Country: None (occurrence: CA)
  Receive Date: 20200610
  Receipt Date: 20200610
  Transmission Date: 20200714
  Serious: Yes (Hospitalization, Other)
  Sender: FDA-Public Use
  Company Number: CA-ABBVIE-20K-028-3216759-00

PATIENT
  Age: 55 Year
  Sex: Male

DRUGS (2)
  1. HUMIRA [Suspect]
     Active Substance: ADALIMUMAB
     Route: 058
     Dates: start: 202003
  2. HUMIRA [Suspect]
     Active Substance: ADALIMUMAB
     Indication: PRODUCT USED FOR UNKNOWN INDICATION
     Route: 058
     Dates: start: 20191210, end: 201912

REACTIONS (12)
  - General physical health deterioration [Not Recovered/Not Resolved]
  - Muscle atrophy [Unknown]
  - Fall [Recovered/Resolved]
  - Escherichia infection [Recovered/Resolved]
  - Tremor [Unknown]
  - Altered state of consciousness [Not Recovered/Not Resolved]
  - Overdose [Not Recovered/Not Resolved]
  - Osteoporosis [Not Recovered/Not Resolved]
  - Sepsis [Unknown]
  - Tendon disorder [Unknown]
  - Pyoderma gangrenosum [Unknown]
  - Asthenia [Unknown]

NARRATIVE: CASE EVENT DATE: 201912
